FAERS Safety Report 15838384 (Version 1)
Quarter: 2019Q1

REPORT INFORMATION
  Report Type: Report from Study
  Country: ES (occurrence: ES)
  Receive Date: 20190117
  Receipt Date: 20190117
  Transmission Date: 20190417
  Serious: Yes (Other)
  Sender: FDA-Public Use
  Company Number: ES-ASPEN-GLO2019ES000402

PATIENT
  Age: 6 Year
  Sex: Female
  Weight: 39.6 kg

DRUGS (6)
  1. GABAPENTINA [Concomitant]
     Active Substance: GABAPENTIN
     Dosage: 100 MG, 1 DOSE 8 HOURS
     Route: 048
     Dates: start: 20170913
  2. HIDROCORTISONA [Concomitant]
     Active Substance: HYDROCORTISONE
     Indication: PROPHYLAXIS
     Dosage: 3 MG, 1 DOSE 8 HOURS
     Route: 048
     Dates: start: 20170920
  3. CICLOFOSFAMIDA [Suspect]
     Active Substance: CYCLOPHOSPHAMIDE
     Indication: ACUTE LYMPHOCYTIC LEUKAEMIA
     Dosage: 481 MG, QD
     Route: 042
     Dates: start: 20170927, end: 20170927
  4. CITARABINA [Suspect]
     Active Substance: CYTARABINE
     Indication: ACUTE LYMPHOCYTIC LEUKAEMIA
     Dosage: 720 MG, QD
     Route: 042
     Dates: start: 20170929, end: 20171002
  5. MESNA. [Concomitant]
     Active Substance: MESNA
     Indication: PROPHYLAXIS
     Dosage: 192 MG, QD
     Route: 042
     Dates: start: 20170927, end: 20170927
  6. TIOGUANINA ASPEN [Suspect]
     Active Substance: THIOGUANINE ANHYDROUS
     Indication: ACUTE LYMPHOCYTIC LEUKAEMIA
     Dosage: 40 MG, QD
     Route: 048
     Dates: start: 20170926, end: 20171006

REACTIONS (3)
  - Epistaxis [Recovered/Resolved]
  - Haematemesis [Recovered/Resolved]
  - Thrombocytopenia [Recovered/Resolved]

NARRATIVE: CASE EVENT DATE: 20171008
